FAERS Safety Report 12832557 (Version 1)
Quarter: 2016Q4

REPORT INFORMATION
  Report Type: Spontaneous
  Country: US (occurrence: US)
  Receive Date: 20161010
  Receipt Date: 20161010
  Transmission Date: 20170207
  Serious: No
  Sender: FDA-Public Use
  Company Number: US-JAZZ-2016-US-013341

PATIENT
  Sex: Male

DRUGS (14)
  1. XYREM [Suspect]
     Active Substance: SODIUM OXYBATE
     Indication: NARCOLEPSY
     Dosage: 2.25 G, BID
     Route: 048
     Dates: start: 200911, end: 201001
  2. XYREM [Suspect]
     Active Substance: SODIUM OXYBATE
     Dosage: 3.75 G, BID
     Route: 048
     Dates: start: 201303
  3. GLUCOSAMINE + CHONDROITIN [Concomitant]
  4. FISH OIL [Concomitant]
     Active Substance: FISH OIL
  5. NAPROXEN. [Concomitant]
     Active Substance: NAPROXEN
  6. CLARITIN [Concomitant]
     Active Substance: LORATADINE
  7. MSM [Concomitant]
     Active Substance: DIMETHYL SULFONE
  8. MULTIVITAMINS [Concomitant]
     Active Substance: VITAMINS
  9. NUVIGIL [Concomitant]
     Active Substance: ARMODAFINIL
  10. LISINOPRIL. [Concomitant]
     Active Substance: LISINOPRIL
  11. FLONASE [Concomitant]
     Active Substance: FLUTICASONE PROPIONATE
  12. NAPROSYN [Concomitant]
     Active Substance: NAPROXEN
  13. XYREM [Suspect]
     Active Substance: SODIUM OXYBATE
     Indication: CATAPLEXY
     Dosage: DOSE ADJUSTMENTS
     Route: 048
     Dates: start: 201001, end: 201303
  14. PROVIGIL [Concomitant]
     Active Substance: MODAFINIL

REACTIONS (1)
  - Unevaluable event [Unknown]
